FAERS Safety Report 9234302 (Version 1)
Quarter: 2013Q2

REPORT INFORMATION
  Report Type: Spontaneous
  Country: US (occurrence: None)
  Receive Date: 20130416
  Receipt Date: 20130416
  Transmission Date: 20140414
  Serious: Yes (Other)
  Sender: FDA-Public Use
  Company Number: None

PATIENT
  Age: 40 Year
  Sex: Female
  Weight: 61.69 kg

DRUGS (2)
  1. WARFARIN - MANUFACTURER - TARO PHA, US [Suspect]
     Indication: HIP ARTHROPLASTY
     Dosage: 2MG  1 A DAY ORAL
     Route: 048
     Dates: start: 20130227, end: 20130322
  2. WARFARIN - MANUFACTURER - TARO PHA, US [Suspect]
     Indication: POSTOPERATIVE CARE
     Dosage: 2MG  1 A DAY ORAL
     Route: 048
     Dates: start: 20130227, end: 20130322

REACTIONS (12)
  - Feeling abnormal [None]
  - Chest discomfort [None]
  - Pain in extremity [None]
  - Dizziness [None]
  - Chills [None]
  - Cough [None]
  - Muscle twitching [None]
  - Pain [None]
  - Asthenia [None]
  - Nausea [None]
  - Headache [None]
  - Alopecia [None]
